FAERS Safety Report 11740863 (Version 2)
Quarter: 2015Q4

REPORT INFORMATION
  Report Type: Report from Study
  Country: US (occurrence: US)
  Receive Date: 20151115
  Receipt Date: 20151116
  Transmission Date: 20160304
  Serious: Yes (Other)
  Sender: FDA-Public Use
  Company Number: US-ASTRAZENECA-2015SF04354

PATIENT
  Age: 3 Month
  Sex: Male
  Weight: 9.5 kg

DRUGS (8)
  1. PULMICORT RESPULES [Suspect]
     Active Substance: BUDESONIDE
     Indication: HETEROTAXIA
     Dosage: 1MG/2ML DAILY
     Route: 055
  2. PULMICORT RESPULES [Suspect]
     Active Substance: BUDESONIDE
     Indication: UNIVENTRICULAR HEART
     Dosage: 1MG/2ML DAILY
     Route: 055
  3. PULMAZYME [Concomitant]
     Indication: LUNG DISORDER
     Route: 055
  4. PULMICORT RESPULES [Suspect]
     Active Substance: BUDESONIDE
     Indication: DYSKINESIA
     Dosage: 1MG/2ML DAILY
     Route: 055
  5. BABY ASPIRIN [Concomitant]
     Active Substance: ASPIRIN
     Indication: CARDIAC DISORDER
  6. ZITHROMAX [Concomitant]
     Active Substance: AZITHROMYCIN DIHYDRATE
     Indication: PROPHYLAXIS
  7. ALBUTEROL. [Concomitant]
     Active Substance: ALBUTEROL
     Indication: PRODUCTIVE COUGH
     Dosage: DAILY
     Route: 055
  8. BABY ASPIRIN [Concomitant]
     Active Substance: ASPIRIN
     Indication: HAEMODILUTION

REACTIONS (6)
  - Univentricular heart [Unknown]
  - Heterotaxia [Unknown]
  - Drug administered to patient of inappropriate age [Unknown]
  - Drug ineffective for unapproved indication [Unknown]
  - Intentional product misuse [Unknown]
  - Off label use [None]

NARRATIVE: CASE EVENT DATE: 201410
